FAERS Safety Report 14122540 (Version 3)
Quarter: 2018Q1

REPORT INFORMATION
  Report Type: Spontaneous
  Country: US (occurrence: US)
  Receive Date: 20171024
  Receipt Date: 20180222
  Transmission Date: 20180508
  Serious: Yes (Death)
  Sender: FDA-Public Use
  Company Number: US-ACTELION-A-NJ2017-161409

PATIENT
  Age: 61 Year
  Sex: Male
  Weight: 53.61 kg

DRUGS (2)
  1. SILDENAFIL. [Concomitant]
     Active Substance: SILDENAFIL
  2. OPSUMIT [Suspect]
     Active Substance: MACITENTAN
     Indication: PULMONARY HYPERTENSION
     Dosage: 10 MG, QD
     Route: 048

REACTIONS (2)
  - Incorrect dose administered [Unknown]
  - Death [Fatal]

NARRATIVE: CASE EVENT DATE: 20171016
